FAERS Safety Report 8154522-0 (Version None)
Quarter: 2012Q1

REPORT INFORMATION
  Report Type: 
  Country: None (occurrence: None)
  Receive Date: 20120215
  Receipt Date: 20120202
  Transmission Date: 20120608
  Serious: Yes (Death, Hospitalization, Other)
  Sender: FDA-Public Use
  Company Number: 2012MA001475

PATIENT
  Sex: Female

DRUGS (19)
  1. LOPRESSOR [Concomitant]
  2. DULCOLAX [Concomitant]
  3. COUMADIN [Concomitant]
  4. MIRALEX [Concomitant]
  5. ACETAMINOPHEN [Concomitant]
  6. PROTONIX [Concomitant]
  7. CALCIUM CARBONATE [Concomitant]
  8. LASIX [Concomitant]
  9. LEXAPRO [Concomitant]
  10. VITAMIN D [Concomitant]
  11. DIGOXIN [Suspect]
     Indication: ATRIAL FIBRILLATION
     Dosage: 250 MCG, QD, PO
     Route: 048
     Dates: start: 20000317, end: 20080225
  12. ASPIRIN [Concomitant]
  13. VASOTEC [Concomitant]
  14. NEXIUM [Concomitant]
  15. SYNTHROID [Concomitant]
  16. POTASSIUM CHLORIDE [Concomitant]
  17. MICONAZOLE [Concomitant]
  18. LIPITOR [Concomitant]
  19. COLACE [Concomitant]

REACTIONS (38)
  - ANHEDONIA [None]
  - ALTERED STATE OF CONSCIOUSNESS [None]
  - CEREBRAL INFARCTION [None]
  - VENTRICULAR EXTRASYSTOLES [None]
  - TOXICITY TO VARIOUS AGENTS [None]
  - ECONOMIC PROBLEM [None]
  - CEREBROVASCULAR ACCIDENT [None]
  - TINEA CRURIS [None]
  - LUNG ADENOCARCINOMA [None]
  - VASCULAR CALCIFICATION [None]
  - ATRIAL FIBRILLATION [None]
  - MITRAL VALVE STENOSIS [None]
  - TRICUSPID VALVE INCOMPETENCE [None]
  - HERPES ZOSTER [None]
  - INJURY [None]
  - COMPUTERISED TOMOGRAM ABNORMAL [None]
  - CHEST X-RAY ABNORMAL [None]
  - PULMONARY CONGESTION [None]
  - GASTROINTESTINAL SOUNDS ABNORMAL [None]
  - CARDIAC FAILURE CONGESTIVE [None]
  - CAROTID ARTERIOSCLEROSIS [None]
  - CULTURE URINE POSITIVE [None]
  - MENTAL DISORDER [None]
  - CARDIOACTIVE DRUG LEVEL INCREASED [None]
  - LABORATORY TEST ABNORMAL [None]
  - ATELECTASIS [None]
  - VERTEBROBASILAR DOLICHOECTASIA [None]
  - MITRAL VALVE INCOMPETENCE [None]
  - PAIN [None]
  - ACUTE MYOCARDIAL INFARCTION [None]
  - RESPIRATORY ACIDOSIS [None]
  - LEFT VENTRICULAR FAILURE [None]
  - EMOTIONAL DISORDER [None]
  - CONFUSIONAL STATE [None]
  - APHASIA [None]
  - ANAEMIA [None]
  - CEREBRAL ATROPHY [None]
  - PULMONARY HYPERTENSION [None]
